FAERS Safety Report 20819746 (Version 1)
Quarter: 2022Q2

REPORT INFORMATION
  Report Type: Spontaneous
  Country: US (occurrence: US)
  Receive Date: 20220512
  Receipt Date: 20220512
  Transmission Date: 20220721
  Serious: No
  Sender: FDA-Public Use
  Company Number: US-PFIZER INC-202101289485

PATIENT
  Age: 54 Year
  Sex: Male
  Weight: 82.55 kg

DRUGS (1)
  1. TESTOSTERONE [Suspect]
     Active Substance: TESTOSTERONE
     Dosage: UNK, EVERY TWO WEEKS

REACTIONS (1)
  - Drug ineffective [Unknown]
